FAERS Safety Report 12733771 (Version 2)
Quarter: 2016Q4

REPORT INFORMATION
  Report Type: Spontaneous
  Country: US (occurrence: US)
  Receive Date: 20160912
  Receipt Date: 20161102
  Transmission Date: 20170207
  Serious: Yes (Death, Hospitalization, Other)
  Sender: FDA-Public Use
  Company Number: US-BIOGEN-2016BI00285609

PATIENT
  Age: 71 Year
  Sex: Female

DRUGS (2)
  1. AVONEX [Suspect]
     Active Substance: INTERFERON BETA-1A
     Route: 065
  2. AVONEX [Suspect]
     Active Substance: INTERFERON BETA-1A
     Indication: MULTIPLE SCLEROSIS
     Route: 065
     Dates: start: 19980101

REACTIONS (8)
  - Impaired self-care [Unknown]
  - General physical health deterioration [Unknown]
  - Vertebral osteophyte [Unknown]
  - Emphysema [Unknown]
  - Death [Fatal]
  - Lung neoplasm malignant [Unknown]
  - Colon cancer [Unknown]
  - Back disorder [Unknown]

NARRATIVE: CASE EVENT DATE: 20160930
